FAERS Safety Report 15051637 (Version 1)
Quarter: 2018Q2

REPORT INFORMATION
  Report Type: Spontaneous
  Country: GR (occurrence: GR)
  Receive Date: 20180622
  Receipt Date: 20180622
  Transmission Date: 20180711
  Serious: Yes (Other)
  Sender: FDA-Public Use
  Company Number: GR-ALLERGAN-1831851US

PATIENT
  Age: 78 Year
  Sex: Female
  Weight: 67 kg

DRUGS (8)
  1. LEXOTANIL [Concomitant]
     Active Substance: BROMAZEPAM
     Indication: STRESS
     Route: 065
  2. SEROPRAM [Concomitant]
     Indication: STRESS
     Route: 065
  3. GANFORT [Suspect]
     Active Substance: BIMATOPROST\TIMOLOL
     Indication: GLAUCOMA
     Route: 048
     Dates: start: 20180410, end: 20180420
  4. LOBEN [Concomitant]
     Indication: HYPERTENSION
     Dosage: 1 DF, QD
     Route: 065
  5. SAFLUTAN [Concomitant]
     Active Substance: TAFLUPROST
     Indication: INTRAOCULAR PRESSURE TEST
     Dosage: 2 DROPS FOR EACH EYE.
     Route: 047
  6. PLACOL [Concomitant]
     Active Substance: SIMVASTATIN
     Indication: HYPERCHOLESTEROLAEMIA
     Dosage: 1 DF, QD
     Route: 065
  7. SAFLUTAN [Concomitant]
     Active Substance: TAFLUPROST
     Indication: AGE-RELATED MACULAR DEGENERATION
  8. ZIRTEC [Concomitant]
     Active Substance: CETIRIZINE HYDROCHLORIDE
     Indication: DERMATITIS ALLERGIC
     Dosage: 0.5 DF, UNK
     Route: 065

REACTIONS (2)
  - Incorrect route of drug administration [Unknown]
  - Hair growth abnormal [Unknown]

NARRATIVE: CASE EVENT DATE: 201804
